FAERS Safety Report 9177947 (Version 1)
Quarter: 2013Q1

REPORT INFORMATION
  Report Type: Spontaneous
  Country: US (occurrence: None)
  Receive Date: 20130315
  Receipt Date: 20130315
  Transmission Date: 20140127
  Serious: Yes (Hospitalization, Other)
  Sender: FDA-Public Use
  Company Number: 2013-03880

PATIENT
  Sex: Male

DRUGS (7)
  1. DEXAMETHASONE (WATSON LABORATORIES) (DEXAMETHASONE) UNK, UNKUNK [Suspect]
     Indication: PROPHYLAXIS OF NAUSEA AND VOMITING
  2. OXALIPLATION (ATLLC) OXALIPLATIN) UNK, UNKUNK [Suspect]
     Indication: ADENOCARCINOMA PANCREAS
  3. FLUOROURACIL (FLUOROURACIL) [Suspect]
     Indication: ADENOCARCINOMA PANCREAS
  4. CALCIUM FOLINATE (CALCIUM FOLINATE) [Suspect]
     Indication: ADENOCARCINOMA PANCREAS
  5. GLIMEPIRIDE (GLIMEPIRIDE) [Concomitant]
  6. METFORMIN (METFORMIN) [Concomitant]
  7. EXENATIDE (EXENATIDE) [Concomitant]

REACTIONS (4)
  - Hyperglycaemia [None]
  - Blood lactic acid increased [None]
  - Nausea [None]
  - Hypophagia [None]
